FAERS Safety Report 7041472-6 (Version None)
Quarter: 2010Q4

REPORT INFORMATION
  Report Type: 
  Country: None (occurrence: None)
  Receive Date: 20101013
  Receipt Date: 20090921
  Transmission Date: 20110411
  Serious: No
  Sender: FDA-Public Use
  Company Number: US-ASTRAZENECA-2009SE14298

PATIENT
  Age: 79 Year
  Sex: Male

DRUGS (4)
  1. SYMBICORT [Suspect]
     Indication: EMPHYSEMA
     Dosage: 320 MCG
     Route: 055
     Dates: start: 20080101
  2. SPIRIVA [Concomitant]
  3. HIGH BLOOD PRESSURE PILLS [Concomitant]
  4. CHOLESTEROL PILLS [Concomitant]

REACTIONS (4)
  - DYSPNOEA [None]
  - LIP SWELLING [None]
  - PRODUCTIVE COUGH [None]
  - WHEEZING [None]
